FAERS Safety Report 6714181-8 (Version None)
Quarter: 2010Q2

REPORT INFORMATION
  Report Type: 
  Country: None (occurrence: None)
  Receive Date: 20100503
  Receipt Date: 20100420
  Transmission Date: 20101027
  Serious: Yes (Death, Other)
  Sender: FDA-Public Use
  Company Number: 230075M08GBR

PATIENT
  Age: 52 Year
  Sex: Female

DRUGS (1)
  1. REBIF [Suspect]
     Dosage: 44, 3 IN 1 WK
     Dates: start: 20041103, end: 20080626

REACTIONS (4)
  - LETHARGY [None]
  - METASTASES TO LIVER [None]
  - NEOPLASM MALIGNANT [None]
  - WEIGHT INCREASED [None]
